FAERS Safety Report 25438412 (Version 1)
Quarter: 2025Q2

REPORT INFORMATION
  Report Type: Spontaneous
  Country: FR (occurrence: FR)
  Receive Date: 20250616
  Receipt Date: 20250616
  Transmission Date: 20250717
  Serious: Yes (Death)
  Sender: AUROBINDO
  Company Number: FR-AFSSAPS-PP2025000515

PATIENT
  Age: 87 Year
  Sex: Female
  Weight: 61 kg

DRUGS (5)
  1. VENLAFAXINE HYDROCHLORIDE [Suspect]
     Active Substance: VENLAFAXINE HYDROCHLORIDE
     Indication: Depression
     Route: 048
  2. NEFOPAM [Suspect]
     Active Substance: NEFOPAM
     Indication: Pain
     Dosage: 60 MILLIGRAM, ONCE A DAY
     Route: 042
     Dates: start: 20250416
  3. ONDANSETRON [Suspect]
     Active Substance: ONDANSETRON
     Indication: Antiemetic supportive care
     Route: 042
     Dates: start: 20250416
  4. BISOPROLOL FUMARATE [Suspect]
     Active Substance: BISOPROLOL FUMARATE
     Indication: Hypertension
     Route: 048
  5. ZOLPIDEM TARTRATE [Suspect]
     Active Substance: ZOLPIDEM TARTRATE
     Indication: Insomnia
     Route: 048

REACTIONS (2)
  - Fall [Fatal]
  - Epistaxis [Fatal]

NARRATIVE: CASE EVENT DATE: 20250422
